FAERS Safety Report 4628633-8 (Version None)
Quarter: 2005Q2

REPORT INFORMATION
  Report Type: 
  Country: None (occurrence: None)
  Receive Date: 20050404
  Receipt Date: 20050317
  Transmission Date: 20051028
  Serious: Yes (Other)
  Sender: FDA-Public Use
  Company Number: WAES 0311USA02425

PATIENT
  Age: 83 Year
  Sex: Female

DRUGS (13)
  1. SINGULAIR [Suspect]
     Indication: ASTHMA
     Dosage: 10 MG/DAILY, PO
     Route: 048
     Dates: start: 20030930, end: 20031007
  2. THERAPY UNSPECIFIED [Concomitant]
  3. CALCITRIOL [Concomitant]
  4. BUDESONIDE [Concomitant]
  5. DOXAZOSIN MESYLATE [Concomitant]
  6. FAMOTIDINE [Concomitant]
  7. FUROSEMIDE [Concomitant]
  8. ISOSORBIDE DINITRATE [Concomitant]
  9. LEVOTHYROXINE SODIUM [Concomitant]
  10. METILDIGOXIN [Concomitant]
  11. THEOPHYLLINE [Concomitant]
  12. VOBLIBOSE [Concomitant]
  13. WARFARIN POTASSIUM [Concomitant]

REACTIONS (4)
  - DIFFICULTY IN WALKING [None]
  - DIZZINESS [None]
  - GAIT DISTURBANCE [None]
  - HEADACHE [None]
